FAERS Safety Report 25378002 (Version 1)
Quarter: 2025Q2

REPORT INFORMATION
  Report Type: Spontaneous
  Country: US (occurrence: US)
  Receive Date: 20250530
  Receipt Date: 20250530
  Transmission Date: 20250717
  Serious: Yes (Other)
  Sender: BAXTER
  Company Number: US-BAXTER-2025BAX015803

PATIENT
  Age: 64 Year
  Sex: Female

DRUGS (8)
  1. CYCLOPHOSPHAMIDE [Suspect]
     Active Substance: CYCLOPHOSPHAMIDE
     Indication: Breast cancer female
     Route: 065
  2. CYCLOPHOSPHAMIDE [Suspect]
     Active Substance: CYCLOPHOSPHAMIDE
     Indication: Invasive ductal breast carcinoma
  3. DOXORUBICIN [Suspect]
     Active Substance: DOXORUBICIN
     Indication: Breast cancer female
     Route: 065
  4. DOXORUBICIN [Suspect]
     Active Substance: DOXORUBICIN
     Indication: Invasive ductal breast carcinoma
  5. ANASTROZOLE [Concomitant]
     Active Substance: ANASTROZOLE
     Route: 065
     Dates: end: 2018
  6. PALBOCICLIB [Concomitant]
     Active Substance: PALBOCICLIB
     Route: 065
  7. PALBOCICLIB [Concomitant]
     Active Substance: PALBOCICLIB
     Route: 065
  8. LETROZOLE [Concomitant]
     Active Substance: LETROZOLE
     Route: 065

REACTIONS (6)
  - Metastases to lung [Unknown]
  - Metastases to spine [Unknown]
  - Metastases to bone [Unknown]
  - Metastases to liver [Unknown]
  - Drug ineffective [Unknown]
  - Back pain [Unknown]
